FAERS Safety Report 5804541-1 (Version None)
Quarter: 2008Q3

REPORT INFORMATION
  Report Type: 
  Country: None (occurrence: None)
  Receive Date: 20080707
  Receipt Date: 20080624
  Transmission Date: 20090109
  Serious: Yes (Death, Hospitalization)
  Sender: FDA-Public Use
  Company Number: AZADE200800161

PATIENT
  Age: 64 Year
  Sex: Male

DRUGS (1)
  1. VIDAZA [Suspect]
     Indication: ACUTE MYELOID LEUKAEMIA
     Dosage: (143 MG, 5 D, SUBCUTANEOUS)
     Route: 058
     Dates: start: 20080506, end: 20080510

REACTIONS (4)
  - LUNG INFILTRATION [None]
  - NEUTROPENIA [None]
  - RESPIRATORY FAILURE [None]
  - WHITE BLOOD CELL COUNT DECREASED [None]
